FAERS Safety Report 8333582-8 (Version None)
Quarter: 2012Q1

REPORT INFORMATION
  Report Type: 
  Country: None (occurrence: None)
  Receive Date: 20120328
  Receipt Date: 20100618
  Transmission Date: 20120608
  Serious: Yes (Other)
  Sender: FDA-Public Use
  Company Number: PHHY2010US40468

PATIENT
  Sex: Female

DRUGS (3)
  1. LISINOPRIL [Suspect]
  2. VALTURNA [Suspect]
     Dosage: 300/ 320 MG, ORAL
     Route: 048
  3. TEKTURNA [Suspect]
     Dosage: 300

REACTIONS (2)
  - DIARRHOEA [None]
  - BLOOD PRESSURE FLUCTUATION [None]
